FAERS Safety Report 5588614-7 (Version None)
Quarter: 2008Q1

REPORT INFORMATION
  Report Type: 
  Country: None (occurrence: None)
  Receive Date: 20080111
  Receipt Date: 20080104
  Transmission Date: 20080703
  Serious: Yes (Disabling, Other)
  Sender: FDA-Public Use
  Company Number: US-PFIZER INC-2007086235

PATIENT
  Sex: Male

DRUGS (1)
  1. GEODON [Suspect]

REACTIONS (4)
  - ABDOMINAL PAIN UPPER [None]
  - DISABILITY [None]
  - DYSPEPSIA [None]
  - FLATULENCE [None]
